FAERS Safety Report 4361091-X (Version None)
Quarter: 2004Q2

REPORT INFORMATION
  Report Type: 
  Country: None (occurrence: None)
  Receive Date: 20040520
  Receipt Date: 20040513
  Transmission Date: 20050107
  Serious: Yes (Other)
  Sender: FDA-Public Use
  Company Number: JP-ROCHE-367641

PATIENT
  Age: 25 Year
  Sex: Male

DRUGS (1)
  1. ROCEPHIN [Suspect]
     Indication: SUBCUTANEOUS ABSCESS
     Route: 050
     Dates: start: 20040506, end: 20040506

REACTIONS (3)
  - ASTHMA [None]
  - EYELID OEDEMA [None]
  - PHARYNGEAL OEDEMA [None]
